FAERS Safety Report 24592480 (Version 1)
Quarter: 2024Q4

REPORT INFORMATION
  Report Type: Spontaneous
  Country: GB (occurrence: GB)
  Receive Date: 20241108
  Receipt Date: 20241108
  Transmission Date: 20250115
  Serious: Yes (Other)
  Sender: AUROBINDO
  Company Number: GB-MHRA-MED-202410270744582060-GBRWS

PATIENT
  Age: 7 Year

DRUGS (2)
  1. MONTELUKAST [Suspect]
     Active Substance: MONTELUKAST
     Indication: Lower respiratory tract infection
     Dosage: 5 MILLIGRAM
     Route: 065
     Dates: start: 20241020, end: 20241026
  2. SERETIDE [Concomitant]
     Active Substance: FLUTICASONE PROPIONATE\SALMETEROL XINAFOATE
     Indication: Asthma
     Dosage: UNK
     Route: 065

REACTIONS (1)
  - Mood altered [Recovering/Resolving]

NARRATIVE: CASE EVENT DATE: 20241025
